FAERS Safety Report 5039473-2 (Version None)
Quarter: 2006Q2

REPORT INFORMATION
  Report Type: 
  Country: None (occurrence: None)
  Receive Date: 20060629
  Receipt Date: 20060621
  Transmission Date: 20061013
  Serious: Yes (Death)
  Sender: FDA-Public Use
  Company Number: JP-BRISTOL-MYERS SQUIBB COMPANY-13427844

PATIENT
  Age: 5 Year
  Sex: Male

DRUGS (8)
  1. LASTET [Suspect]
     Indication: RETINOBLASTOMA
     Route: 042
     Dates: start: 19990225
  2. ENDOXAN [Suspect]
     Indication: RETINOBLASTOMA
     Route: 042
     Dates: start: 19990225
  3. CARBOPLATIN [Suspect]
     Indication: RETINOBLASTOMA
     Route: 042
     Dates: start: 19990225
  4. IFOSFAMIDE [Suspect]
     Indication: RETINOBLASTOMA
     Route: 042
     Dates: start: 19990601
  5. THERARUBICIN [Suspect]
     Indication: RETINOBLASTOMA
     Route: 042
     Dates: start: 19990225
  6. ALKERAN [Suspect]
     Indication: RETINOBLASTOMA
     Route: 042
     Dates: start: 19990601
  7. MABLIN [Suspect]
     Indication: RETINOBLASTOMA
     Route: 048
     Dates: start: 19990601
  8. THIOTEPA [Suspect]
     Indication: RETINOBLASTOMA
     Route: 042
     Dates: start: 19990601

REACTIONS (1)
  - BONE SARCOMA [None]
